FAERS Safety Report 8363649-X (Version None)
Quarter: 2012Q2

REPORT INFORMATION
  Report Type: 
  Country: None (occurrence: None)
  Receive Date: 20120516
  Receipt Date: 20120507
  Transmission Date: 20120825
  Serious: Yes (Other)
  Sender: FDA-Public Use
  Company Number: TR-US-EMD SERONO, INC.-7130898

PATIENT
  Age: 8 Year
  Sex: Male

DRUGS (4)
  1. CYTARABINE [Suspect]
  2. CYTARABINE [Suspect]
  3. CYTARABINE [Suspect]
     Indication: ACUTE MYELOID LEUKAEMIA
  4. MITOXANTRONE [Suspect]
     Indication: ACUTE MYELOID LEUKAEMIA

REACTIONS (2)
  - PUNCTATE KERATITIS [None]
  - CORNEAL EPITHELIAL MICROCYSTS [None]
